FAERS Safety Report 23513702 (Version 1)
Quarter: 2024Q1

REPORT INFORMATION
  Report Type: Spontaneous
  Country: ZA (occurrence: ZA)
  Receive Date: 20240212
  Receipt Date: 20240212
  Transmission Date: 20240410
  Serious: Yes (Other)
  Sender: FDA-Public Use
  Company Number: ZA-PFIZER INC-2020499835

PATIENT
  Age: 48 Year
  Sex: Female
  Weight: 114 kg

DRUGS (4)
  1. METHOTREXATE SODIUM [Suspect]
     Active Substance: METHOTREXATE SODIUM
     Dosage: 20 MG, WEEKLY
     Dates: start: 20180409
  2. SULFASALAZINE [Suspect]
     Active Substance: SULFASALAZINE
     Dosage: 1 G, 2X/DAY
     Dates: start: 20180224
  3. CHLOROQUINE [Suspect]
     Active Substance: CHLOROQUINE
     Dosage: 150 MG, DAILY
     Dates: start: 20180224, end: 20180920
  4. ARAVA [Suspect]
     Active Substance: LEFLUNOMIDE
     Dosage: 20 MG, DAILY
     Dates: start: 20200228, end: 20200601

REACTIONS (5)
  - Diverticulitis [Unknown]
  - Therapeutic product effect incomplete [Unknown]
  - Condition aggravated [Unknown]
  - C-reactive protein increased [Unknown]
  - Weight increased [Unknown]
